FAERS Safety Report 8333323-4 (Version None)
Quarter: 2012Q2

REPORT INFORMATION
  Report Type: 
  Country: None (occurrence: None)
  Receive Date: 20120503
  Receipt Date: 20120427
  Transmission Date: 20120825
  Serious: Yes (Death, Hospitalization)
  Sender: FDA-Public Use
  Company Number: US-SANOFI-AVENTIS-2012SA030290

PATIENT
  Age: 32 Year
  Sex: Male
  Weight: 83 kg

DRUGS (19)
  1. OXALIPLATIN [Suspect]
     Dosage: DOSE: 85MG/M2/DAY IV OVER 2 HOURS ON DAY 1, 15 AND 29
     Route: 042
     Dates: start: 20120409
  2. GABAPENTIN [Concomitant]
  3. FLAVOPIRIDOL [Suspect]
     Dosage: DOSE: 70MG/M2/DAY IV OVER 1 HOUR ON DAYS 1. 15 AND 29
     Route: 042
     Dates: start: 20120312
  4. LEUCOVORIN CALCIUM [Suspect]
     Dosage: DOSE: 400MG/M2/DAY IV OVER 2 HOURS ON DAYS 1, 15 AND 29
     Route: 042
     Dates: start: 20120312
  5. COLACE [Concomitant]
  6. NYSTATIN [Concomitant]
  7. FLAVOPIRIDOL [Suspect]
     Dosage: DOSE: 70MG/M2/DAY IV OVER 1 HOUR ON DAYS 1. 15 AND 29
     Route: 042
     Dates: start: 20120410
  8. FLUOROURACIL [Suspect]
     Route: 042
     Dates: start: 20120312
  9. PROTONIX [Concomitant]
  10. MAGNESIUM [Concomitant]
  11. COMPAZINE [Concomitant]
  12. ALDACTONE [Concomitant]
  13. VANCOMYCIN [Concomitant]
     Dates: start: 20120409
  14. ZOSYN [Concomitant]
     Dates: start: 20120409
  15. OXALIPLATIN [Suspect]
     Dosage: DOSE: 85MG/M2/DAY IV OVER 2 HOURS ON DAY 1, 15 AND 29
     Route: 042
     Dates: start: 20120312
  16. FLUOROURACIL [Suspect]
     Dosage: 400MG/M2 IV OVER 15MIN FOLLOWED BY 1800MG/M2 IV OVER 48 HOURS ON DAYS 1-2, 15-16 AND 29-30
     Route: 042
     Dates: start: 20120410, end: 20120410
  17. ZOFRAN [Concomitant]
  18. LEUCOVORIN CALCIUM [Suspect]
     Dosage: DOSE: 400MG/M2/DAY IV OVER 2 HOURS ON DAYS 1, 15 AND 29
     Route: 042
     Dates: start: 20120409
  19. CARDIOVASCULAR SYSTEM DRUGS [Concomitant]
     Dates: start: 20120410

REACTIONS (3)
  - CARDIAC ARREST [None]
  - MULTI-ORGAN FAILURE [None]
  - ASCITES [None]
